FAERS Safety Report 20730003 (Version 3)
Quarter: 2022Q2

REPORT INFORMATION
  Report Type: Spontaneous
  Country: US (occurrence: None)
  Receive Date: 20220420
  Receipt Date: 20220526
  Transmission Date: 20220721
  Serious: No
  Sender: FDA-Public Use
  Company Number: 2022A147435

PATIENT
  Age: 964 Month
  Sex: Female
  Weight: 72.6 kg

DRUGS (1)
  1. BUDESONIDE\FORMOTEROL\GLYCOPYRRONIUM [Suspect]
     Active Substance: BUDESONIDE\FORMOTEROL\GLYCOPYRRONIUM
     Indication: Chronic obstructive pulmonary disease
     Dosage: 160MCG/9MCG/4.8MCG, 2 PUFFS TWICE A DAY
     Route: 055
     Dates: end: 202204

REACTIONS (7)
  - Dyspnoea [Not Recovered/Not Resolved]
  - Asthenia [Unknown]
  - Gait disturbance [Unknown]
  - Device use issue [Unknown]
  - Wrong technique in product usage process [Unknown]
  - Device malfunction [Unknown]
  - Device malfunction [Unknown]

NARRATIVE: CASE EVENT DATE: 20220401
